FAERS Safety Report 5351168-4 (Version None)
Quarter: 2007Q2

REPORT INFORMATION
  Report Type: 
  Country: None (occurrence: None)
  Receive Date: 20070606
  Receipt Date: 20070529
  Transmission Date: 20071010
  Serious: Yes (Other)
  Sender: FDA-Public Use
  Company Number: 2007SP010875

PATIENT
  Age: 8 Year
  Sex: Male

DRUGS (1)
  1. CLARITIN-D 24 HOUR [Suspect]
     Indication: RASH
     Dosage: 10 MG;ONCE;PO
     Route: 048
     Dates: start: 20070528

REACTIONS (1)
  - LIP SWELLING [None]
